FAERS Safety Report 25040692 (Version 1)
Quarter: 2025Q1

REPORT INFORMATION
  Report Type: Spontaneous
  Country: US (occurrence: US)
  Receive Date: 20250305
  Receipt Date: 20250305
  Transmission Date: 20250409
  Serious: Yes (Other)
  Sender: REGENERON
  Company Number: US-REGENERON PHARMACEUTICALS, INC.-2025-039850

PATIENT
  Sex: Female

DRUGS (2)
  1. PRALUENT [Suspect]
     Active Substance: ALIROCUMAB
     Indication: Hypercholesterolaemia
     Dosage: 75 MG, Q2W
     Route: 065
     Dates: start: 20240314
  2. PRALUENT [Suspect]
     Active Substance: ALIROCUMAB
     Indication: Carotid artery occlusion

REACTIONS (2)
  - Cataract [Unknown]
  - Visual impairment [Unknown]
